FAERS Safety Report 21135481 (Version 1)
Quarter: 2022Q3

REPORT INFORMATION
  Report Type: Spontaneous
  Country: IN (occurrence: IN)
  Receive Date: 20220727
  Receipt Date: 20220727
  Transmission Date: 20221027
  Serious: Yes (Death)
  Sender: FDA-Public Use
  Company Number: IN-MLMSERVICE-20220714-3671674-1

PATIENT
  Age: 36 Year
  Sex: Male

DRUGS (13)
  1. DEXAMETHASONE [Suspect]
     Active Substance: DEXAMETHASONE
     Indication: Haemophagocytic lymphohistiocytosis
     Route: 042
  2. IMMUNE GLOBULIN NOS [Suspect]
     Active Substance: IMMUNE GLOBULIN NOS
     Indication: Haemophagocytic lymphohistiocytosis
     Route: 042
  3. COLISTIN [Concomitant]
     Active Substance: COLISTIN
     Indication: Escherichia infection
  4. DOXYCYCLINE [Concomitant]
     Active Substance: DOXYCYCLINE
     Indication: Evidence based treatment
     Route: 042
  5. RIFAXIMIN [Concomitant]
     Active Substance: RIFAXIMIN
     Indication: Evidence based treatment
  6. URSODIOL [Concomitant]
     Active Substance: URSODIOL
     Indication: Product used for unknown indication
  7. VITAMIN K [Concomitant]
     Active Substance: PHYTONADIONE
     Indication: Evidence based treatment
  8. OXYGEN [Concomitant]
     Active Substance: OXYGEN
     Indication: Oxygen therapy
     Dosage: HOME-BASED INTERMITTENT OXYGEN THERAPY AT 2-4 L/MIN
  9. OXYGEN [Concomitant]
     Active Substance: OXYGEN
     Dosage: LOW FLOW OXYGEN SUPPORT
  10. LACTULOSE [Concomitant]
     Active Substance: LACTULOSE
     Indication: Evidence based treatment
  11. PIPERACILLIN AND TAZOBACTAM [Concomitant]
     Active Substance: PIPERACILLIN SODIUM\TAZOBACTAM SODIUM
     Indication: Evidence based treatment
     Dosage: QID
     Route: 042
  12. CEFTRIAXONE [Concomitant]
     Active Substance: CEFTRIAXONE
     Indication: Product used for unknown indication
     Dosage: INJECTABLE
  13. PIRFENIDONE [Concomitant]
     Active Substance: PIRFENIDONE
     Indication: Pulmonary fibrosis
     Route: 048

REACTIONS (5)
  - Systemic candida [Fatal]
  - Candida infection [Fatal]
  - Acute kidney injury [Fatal]
  - Acute respiratory distress syndrome [Fatal]
  - Multiple organ dysfunction syndrome [Fatal]
